FAERS Safety Report 5136568-X (Version None)
Quarter: 2006Q4

REPORT INFORMATION
  Report Type: 
  Country: None (occurrence: None)
  Receive Date: 20061023
  Receipt Date: 20060317
  Transmission Date: 20070319
  Serious: Yes (Hospitalization)
  Sender: FDA-Public Use
  Company Number: CHPA2006US02975

PATIENT
  Age: 23 Year
  Sex: Male

DRUGS (2)
  1. TAVIST [Suspect]
     Indication: INCORRECT DOSE ADMINISTERED
     Dosage: 7 MG, ONCE/SINGLE
     Dates: start: 20060317
  2. ALCOHOL(ETHANOL) [Suspect]

REACTIONS (2)
  - MULTIPLE DRUG OVERDOSE INTENTIONAL [None]
  - NO ADVERSE DRUG EFFECT [None]
